FAERS Safety Report 6832149-8 (Version None)
Quarter: 2010Q3

REPORT INFORMATION
  Report Type: 
  Country: None (occurrence: None)
  Receive Date: 20100712
  Receipt Date: 20100702
  Transmission Date: 20110219
  Serious: Yes (Hospitalization, Other)
  Sender: FDA-Public Use
  Company Number: US-JNJFOC-20100701942

PATIENT
  Sex: Female
  Weight: 65.77 kg

DRUGS (4)
  1. TOPAMAX [Suspect]
     Indication: PAIN IN EXTREMITY
     Route: 048
  2. TOPAMAX [Suspect]
     Route: 048
  3. ESTROGEN [Suspect]
     Indication: PRODUCT USED FOR UNKNOWN INDICATION
     Route: 065
  4. LEVOTHYROXINE [Concomitant]
     Indication: THYROID DISORDER
     Route: 048

REACTIONS (4)
  - DRUG INEFFECTIVE [None]
  - GASTROOESOPHAGEAL REFLUX DISEASE [None]
  - HAEMANGIOMA OF LIVER [None]
  - PRODUCT FORMULATION ISSUE [None]
